FAERS Safety Report 6603825-7 (Version None)
Quarter: 2010Q1

REPORT INFORMATION
  Report Type: 
  Country: None (occurrence: None)
  Receive Date: 20100226
  Receipt Date: 20090223
  Transmission Date: 20100710
  Serious: No
  Sender: FDA-Public Use
  Company Number: A0768227A

PATIENT
  Age: 30 Year
  Sex: Male

DRUGS (4)
  1. LAMICTAL CD [Suspect]
     Indication: BIPOLAR DISORDER
     Dosage: 75MG PER DAY
     Route: 048
     Dates: start: 20090122
  2. EFFEXOR XR [Concomitant]
  3. KLONOPIN [Concomitant]
  4. TRAZODONE HCL [Concomitant]

REACTIONS (2)
  - DRUG ADMINISTRATION ERROR [None]
  - RASH [None]
